FAERS Safety Report 13284550 (Version 1)
Quarter: 2017Q1

REPORT INFORMATION
  Report Type: Spontaneous
  Country: CA (occurrence: CA)
  Receive Date: 20170301
  Receipt Date: 20170301
  Transmission Date: 20170428
  Serious: Yes (Other)
  Sender: FDA-Public Use
  Company Number: CA-TEVA-742890ACC

PATIENT
  Age: 55 Year
  Sex: Male
  Weight: 80 kg

DRUGS (4)
  1. LAMOTRIGINE. [Concomitant]
     Active Substance: LAMOTRIGINE
  2. ESCITALOPRAM [Concomitant]
     Active Substance: ESCITALOPRAM OXALATE
  3. CLONAZEPAM. [Concomitant]
     Active Substance: CLONAZEPAM
  4. TEVA-PREDNISONE [Suspect]
     Active Substance: PREDNISONE
     Indication: ACUTE SINUSITIS
     Dosage: 10 MILLIGRAM DAILY;
     Route: 048

REACTIONS (4)
  - Musculoskeletal stiffness [Recovering/Resolving]
  - Joint range of motion decreased [Recovering/Resolving]
  - Muscle spasms [Recovering/Resolving]
  - Muscular weakness [Recovering/Resolving]
